FAERS Safety Report 16953582 (Version 1)
Quarter: 2019Q4

REPORT INFORMATION
  Report Type: Spontaneous
  Country: US (occurrence: US)
  Receive Date: 20191023
  Receipt Date: 20191023
  Transmission Date: 20200122
  Serious: No
  Sender: FDA-Public Use
  Company Number: US-EISAI MEDICAL RESEARCH-EC-2019-063847

PATIENT
  Sex: Male

DRUGS (2)
  1. DEPAKOTE [Concomitant]
     Active Substance: DIVALPROEX SODIUM
     Indication: SEIZURE
     Dosage: DOSAGE AND FREQUENCY UNKNOWN; TITRATING FROM DEPAKOTE TO FYCOMPA
  2. FYCOMPA [Suspect]
     Active Substance: PERAMPANEL
     Indication: SEVERE MYOCLONIC EPILEPSY OF INFANCY
     Dosage: DOSAGE AND FREQUENCY UNKNOWN
     Route: 048

REACTIONS (1)
  - Seizure [Unknown]
